FAERS Safety Report 7673361-8 (Version None)
Quarter: 2011Q3

REPORT INFORMATION
  Report Type: 
  Country: None (occurrence: None)
  Receive Date: 20110810
  Receipt Date: 20110801
  Transmission Date: 20111222
  Serious: Yes (Hospitalization, Other)
  Sender: FDA-Public Use
  Company Number: US-JNJFOC-20100509989

PATIENT
  Sex: Male
  Weight: 40 kg

DRUGS (6)
  1. PROTONIX [Concomitant]
  2. REMICADE [Suspect]
     Indication: CROHN'S DISEASE
     Route: 042
     Dates: start: 20090221
  3. PREDNISONE [Concomitant]
  4. REMICADE [Suspect]
     Dosage: TOTAL 6 DOSES
     Route: 042
     Dates: start: 20090928
  5. MERCAPTOPURINE [Concomitant]
  6. METRONIDAZOLE [Concomitant]

REACTIONS (3)
  - ABDOMINAL PAIN [None]
  - SYNCOPE [None]
  - MENTAL STATUS CHANGES [None]
